FAERS Safety Report 9161968 (Version 2)
Quarter: 2013Q1

REPORT INFORMATION
  Report Type: Spontaneous
  Country: JP (occurrence: JP)
  Receive Date: 20130314
  Receipt Date: 20130322
  Transmission Date: 20140127
  Serious: Yes (Other)
  Sender: FDA-Public Use
  Company Number: JP-JNJFOC-20130301742

PATIENT
  Age: 46 Year
  Sex: Male
  Weight: 95 kg

DRUGS (2)
  1. RISPERIDONE [Suspect]
     Indication: SCHIZOPHRENIA
     Route: 048
     Dates: end: 2007
  2. ZYPREXA [Concomitant]
     Indication: SCHIZOPHRENIA
     Route: 065
     Dates: start: 2007

REACTIONS (2)
  - Diabetic retinopathy [Unknown]
  - Diabetes mellitus [Unknown]
